FAERS Safety Report 6334189-4 (Version None)
Quarter: 2009Q3

REPORT INFORMATION
  Report Type: 
  Country: None (occurrence: None)
  Receive Date: 20090829
  Receipt Date: 20090804
  Transmission Date: 20100115
  Serious: No
  Sender: FDA-Public Use
  Company Number: US-ABBOTT-09P-163-0589267-00

PATIENT
  Sex: Male
  Weight: 83.99 kg

DRUGS (13)
  1. SIMCOR [Suspect]
     Indication: BLOOD CHOLESTEROL INCREASED
     Dosage: 500/20 MG
     Dates: start: 20090731
  2. FUROSEMIDE INTENSOL [Concomitant]
     Indication: DRUG USE FOR UNKNOWN INDICATION
  3. PLAVIX [Concomitant]
     Indication: DRUG USE FOR UNKNOWN INDICATION
  4. NEXIUM [Concomitant]
     Indication: DRUG USE FOR UNKNOWN INDICATION
  5. CELEBREX [Concomitant]
     Indication: DRUG USE FOR UNKNOWN INDICATION
  6. COREG [Concomitant]
     Indication: DRUG USE FOR UNKNOWN INDICATION
  7. NITROSTAT [Concomitant]
     Indication: DRUG USE FOR UNKNOWN INDICATION
  8. TERAZOSIN HCL [Concomitant]
     Indication: DRUG USE FOR UNKNOWN INDICATION
  9. LISINOPRIL [Concomitant]
     Indication: DRUG USE FOR UNKNOWN INDICATION
  10. METAMUCIL [Concomitant]
     Indication: DRUG USE FOR UNKNOWN INDICATION
  11. CENTRUM ULTRA MENS [Concomitant]
     Indication: DRUG USE FOR UNKNOWN INDICATION
  12. M.V.I. [Concomitant]
     Indication: DRUG USE FOR UNKNOWN INDICATION
  13. ASPIRIN [Concomitant]
     Indication: PREMEDICATION

REACTIONS (1)
  - FLUSHING [None]
